FAERS Safety Report 19439871 (Version 1)
Quarter: 2021Q2

REPORT INFORMATION
  Report Type: Spontaneous
  Country: US (occurrence: US)
  Receive Date: 20210620
  Receipt Date: 20210620
  Transmission Date: 20210717
  Serious: No
  Sender: FDA-Public Use
  Company Number: US-ORGANON-O2106USA000218

PATIENT
  Sex: Male

DRUGS (1)
  1. PROPECIA [Suspect]
     Active Substance: FINASTERIDE
     Indication: ALOPECIA
     Dosage: 1 MILLIGRAM, QD (3 AND HALF MONTHS)
     Route: 048
     Dates: start: 2011, end: 2011

REACTIONS (7)
  - Intentional dose omission [Unknown]
  - Genital hypoaesthesia [Unknown]
  - Post 5-alpha-reductase inhibitor syndrome [Unknown]
  - Genital hypoaesthesia [Unknown]
  - Feeling abnormal [Unknown]
  - Memory impairment [Unknown]
  - Mental disorder [Unknown]

NARRATIVE: CASE EVENT DATE: 2011
